FAERS Safety Report 9565986 (Version 2)
Quarter: 2013Q4

REPORT INFORMATION
  Report Type: Spontaneous
  Country: IT (occurrence: IT)
  Receive Date: 20130930
  Receipt Date: 20131009
  Transmission Date: 20140711
  Serious: Yes (Hospitalization)
  Sender: FDA-Public Use
  Company Number: IT-ELI_LILLY_AND_COMPANY-IT201309006547

PATIENT
  Age: 28 Year
  Sex: Male

DRUGS (4)
  1. HUMULIN REGULAR [Suspect]
     Indication: TYPE 1 DIABETES MELLITUS
     Dosage: 20 DF, QD
     Route: 058
     Dates: start: 20110901, end: 20130915
  2. HUMULIN REGULAR [Suspect]
     Dosage: UNK UNK, UNKNOWN
  3. HUMULIN NPH [Suspect]
     Indication: TYPE 1 DIABETES MELLITUS
     Dosage: 10 DF, QD
     Route: 058
     Dates: start: 20110901, end: 20130915
  4. HUMULIN NPH [Suspect]
     Dosage: UNK, UNKNOWN

REACTIONS (2)
  - Hypoglycaemia [Recovered/Resolved]
  - Confusional state [Recovered/Resolved]
